FAERS Safety Report 12675528 (Version 1)
Quarter: 2016Q3

REPORT INFORMATION
  Report Type: Spontaneous
  Country: US (occurrence: None)
  Receive Date: 20160822
  Receipt Date: 20160822
  Transmission Date: 20161109
  Serious: Yes (Death)
  Sender: FDA-Public Use
  Company Number: None

PATIENT
  Sex: Male

DRUGS (1)
  1. CAPECITABINE 500MG [Suspect]
     Active Substance: CAPECITABINE
     Dosage: TWO TABLETS (1000MG) BID 14 DS ON 7 OFF ORAL
     Route: 048
     Dates: start: 20160617

REACTIONS (1)
  - Death [None]

NARRATIVE: CASE EVENT DATE: 2016
